FAERS Safety Report 9510623 (Version 2)
Quarter: 2013Q3

REPORT INFORMATION
  Report Type: Spontaneous
  Country: CO (occurrence: CO)
  Receive Date: 20130909
  Receipt Date: 20130917
  Transmission Date: 20140515
  Serious: Yes (Life-Threatening)
  Sender: FDA-Public Use
  Company Number: CO-009507513-1309COL003435

PATIENT
  Age: 41 Year
  Sex: Male

DRUGS (3)
  1. PEGINTERFERON ALFA-2B [Suspect]
     Indication: HEPATITIS C
     Dosage: FORMULATION: PEGINTERFERON ALFA 2B/PEG-INTRON 100 MCG/AMPULE HEPATITIS
     Route: 048
     Dates: start: 20130322
  2. RIBAVIRIN [Suspect]
     Indication: HEPATITIS C
     Dosage: 100 MG, QD
     Route: 048
     Dates: start: 2013
  3. TELAPREVIR [Suspect]
     Indication: HEPATITIS C

REACTIONS (4)
  - Blood albumin abnormal [Not Recovered/Not Resolved]
  - Thrombocytopenia [Not Recovered/Not Resolved]
  - Liver disorder [Not Recovered/Not Resolved]
  - Drug administration error [Unknown]
